FAERS Safety Report 6680319-4 (Version None)
Quarter: 2010Q2

REPORT INFORMATION
  Report Type: 
  Country: None (occurrence: None)
  Receive Date: 20100413
  Receipt Date: 20100406
  Transmission Date: 20101027
  Serious: Yes (Other)
  Sender: FDA-Public Use
  Company Number: FR-GILEAD-2010-0028385

PATIENT
  Age: 11 Year

DRUGS (3)
  1. VIREAD [Suspect]
     Indication: DRUG USE FOR UNKNOWN INDICATION
  2. INTERFERON [Concomitant]
  3. PEGLATED INTERFERON [Concomitant]

REACTIONS (2)
  - CELL DEATH [None]
  - FIBROSIS [None]
